FAERS Safety Report 15427947 (Version 1)
Quarter: 2018Q3

REPORT INFORMATION
  Report Type: Spontaneous
  Country: CH (occurrence: CH)
  Receive Date: 20180926
  Receipt Date: 20180926
  Transmission Date: 20181010
  Serious: Yes (Hospitalization)
  Sender: FDA-Public Use
  Company Number: CH-ASTRAZENECA-2018SF19998

PATIENT
  Age: 901 Month
  Sex: Female

DRUGS (24)
  1. CRESTOR [Interacting]
     Active Substance: ROSUVASTATIN CALCIUM
     Route: 048
     Dates: start: 20180522, end: 20180703
  2. SINTROM [Interacting]
     Active Substance: ACENOCOUMAROL
     Route: 048
     Dates: start: 2002, end: 201805
  3. ENALAPRIL [Concomitant]
     Active Substance: ENALAPRIL
  4. TRAMAL [Concomitant]
     Active Substance: TRAMADOL
     Dates: start: 20180613, end: 20180703
  5. ZOLPIDEM [Concomitant]
     Active Substance: ZOLPIDEM\ZOLPIDEM TARTRATE
     Dosage: AS NECESSARY
     Dates: start: 20180709
  6. HALDOL [Concomitant]
     Active Substance: HALOPERIDOL
     Dosage: AS NECESSARY
     Dates: start: 20180524, end: 20180530
  7. PASPERTIN [Concomitant]
     Dosage: AS NECESSARY
     Dates: start: 20180703
  8. MOVICOL [Concomitant]
     Active Substance: POLYETHYLENE GLYCOL 3350\POTASSIUM CHLORIDE\SODIUM BICARBONATE\SODIUM CHLORIDE
     Dates: start: 20180717
  9. LAXOBERON [Concomitant]
     Active Substance: SODIUM PICOSULFATE
     Dates: start: 20180727
  10. METOPROLOL. [Concomitant]
     Active Substance: METOPROLOL
  11. INSULIN ASPART [Concomitant]
     Active Substance: INSULIN ASPART
  12. DAFALGAN [Concomitant]
     Active Substance: ACETAMINOPHEN
     Dates: start: 20180608, end: 20180703
  13. FLAGYL [Concomitant]
     Active Substance: METRONIDAZOLE\METRONIDAZOLE HYDROCHLORIDE
     Dates: start: 20180511, end: 20180519
  14. DISTRANEURIN [Concomitant]
     Active Substance: CLOMETHIAZOLE
     Dates: start: 20180525, end: 20180618
  15. TEMESTA [Concomitant]
     Dosage: AS NECESSARY
     Dates: start: 20180612
  16. CEFEPIME [Concomitant]
     Active Substance: CEFEPIME HYDROCHLORIDE
     Dates: start: 20180519, end: 20180522
  17. TORASEMIDE [Concomitant]
     Active Substance: TORSEMIDE
  18. BUSCOPAN [Concomitant]
     Active Substance: BUTYLSCOPOLAMINE BROMIDE
     Dosage: AS NECESSARY
     Dates: start: 20180712
  19. CRESTOR [Suspect]
     Active Substance: ROSUVASTATIN CALCIUM
     Route: 048
     Dates: start: 20180510, end: 20180522
  20. LANTUS [Concomitant]
     Active Substance: INSULIN GLARGINE
  21. SINTROM [Interacting]
     Active Substance: ACENOCOUMAROL
     Dosage: AS NECESSARY
     Route: 048
     Dates: start: 201805
  22. MORPHINE HYDROCHLORIDE [Concomitant]
     Active Substance: MORPHINE HYDROCHLORIDE
  23. JEVITY [Concomitant]
     Active Substance: DIETARY SUPPLEMENT
     Dates: start: 20180601
  24. EUTHYROX [Concomitant]
     Active Substance: LEVOTHYROXINE SODIUM

REACTIONS (2)
  - Drug interaction [Recovered/Resolved]
  - International normalised ratio decreased [Not Recovered/Not Resolved]

NARRATIVE: CASE EVENT DATE: 201807
